FAERS Safety Report 24971266 (Version 1)
Quarter: 2025Q1

REPORT INFORMATION
  Report Type: Spontaneous
  Country: US (occurrence: None)
  Receive Date: 20250213
  Receipt Date: 20250213
  Transmission Date: 20250409
  Serious: Yes (Hospitalization)
  Sender: FDA-CTU
  Company Number: None

PATIENT
  Age: 46 Year
  Sex: Male
  Weight: 76 kg

DRUGS (5)
  1. MOTIXAFORTIDE [Suspect]
     Active Substance: MOTIXAFORTIDE
     Indication: Autologous haematopoietic stem cell transplant
     Route: 058
     Dates: start: 20250210, end: 20250210
  2. MOTIXAFORTIDE [Concomitant]
     Active Substance: MOTIXAFORTIDE
     Dates: start: 20250210, end: 20250210
  3. DEXAMETHASONE [Concomitant]
     Active Substance: DEXAMETHASONE
     Dates: start: 20250210, end: 20250210
  4. DIPHENHYDRAMINE [Concomitant]
     Active Substance: DIPHENHYDRAMINE
     Dates: start: 20250210, end: 20250210
  5. FAMOTIDINE [Concomitant]
     Active Substance: FAMOTIDINE
     Dates: start: 20250210, end: 20250210

REACTIONS (3)
  - Syncope [None]
  - Loss of consciousness [None]
  - Vomiting [None]

NARRATIVE: CASE EVENT DATE: 20250210
